FAERS Safety Report 24637738 (Version 1)
Quarter: 2024Q4

REPORT INFORMATION
  Report Type: Spontaneous
  Country: US (occurrence: US)
  Receive Date: 20241119
  Receipt Date: 20241119
  Transmission Date: 20250115
  Serious: No
  Sender: PFIZER
  Company Number: US-PFIZER INC-PV202400149495

PATIENT
  Age: 80 Year
  Sex: Male

DRUGS (3)
  1. VYNDAMAX [Suspect]
     Active Substance: TAFAMIDIS
     Dosage: 61 MG, 1X/DAY
     Route: 048
     Dates: start: 202101
  2. EPLERENONE [Concomitant]
     Active Substance: EPLERENONE
     Dosage: 50 MG, 2X/DAY
  3. LASIX [Concomitant]
     Active Substance: FUROSEMIDE
     Dosage: 80 MG, 1X/DAY

REACTIONS (5)
  - Fatigue [Unknown]
  - Insomnia [Unknown]
  - Nocturia [Unknown]
  - Prostatic disorder [Unknown]
  - Bladder disorder [Unknown]
